FAERS Safety Report 4414519-0 (Version None)
Quarter: 2004Q2

REPORT INFORMATION
  Report Type: 
  Country: None (occurrence: None)
  Receive Date: 20040630
  Receipt Date: 20030711
  Transmission Date: 20050107
  Serious: Yes (Death)
  Sender: FDA-Public Use
  Company Number: 2003013970

PATIENT
  Age: 38 Year
  Sex: Male
  Weight: 86.1834 kg

DRUGS (3)
  1. ZOLOFT [Suspect]
     Indication: DEPRESSION
     Dosage: 150 MG (DAILY), ORAL
     Route: 048
     Dates: start: 20020905
  2. ESCITALOPRAM (ESCITALOPRAM) [Suspect]
     Indication: DEPRESSION
     Dosage: ORAL
     Route: 048
     Dates: start: 20030101, end: 20030101
  3. ALPRAZOLAM [Concomitant]

REACTIONS (8)
  - CONDITION AGGRAVATED [None]
  - DEPRESSION [None]
  - ERECTILE DYSFUNCTION [None]
  - GASTRIC DISORDER [None]
  - INSOMNIA [None]
  - MOOD SWINGS [None]
  - MURDER [None]
  - SEXUAL DYSFUNCTION [None]
